FAERS Safety Report 12196455 (Version 2)
Quarter: 2016Q1

REPORT INFORMATION
  Report Type: Spontaneous
  Country: US (occurrence: US)
  Receive Date: 20160321
  Receipt Date: 20160321
  Transmission Date: 20160526
  Serious: No
  Sender: FDA-Public Use
  Company Number: US-ALLERGAN-1526223US

PATIENT
  Sex: Female

DRUGS (2)
  1. OZURDEX [Suspect]
     Active Substance: DEXAMETHASONE
     Dosage: 0.7 MG, SINGLE
     Route: 031
     Dates: start: 201508, end: 201508
  2. OZURDEX [Suspect]
     Active Substance: DEXAMETHASONE
     Indication: BIRDSHOT CHORIORETINOPATHY
     Dosage: 0.7 MG, SINGLE
     Route: 031
     Dates: start: 201504, end: 201504

REACTIONS (1)
  - Implant site reaction [Not Recovered/Not Resolved]
